FAERS Safety Report 5586388-7 (Version None)
Quarter: 2008Q1

REPORT INFORMATION
  Report Type: 
  Country: None (occurrence: None)
  Receive Date: 20080110
  Receipt Date: 20080103
  Transmission Date: 20080703
  Serious: Yes (Hospitalization, Other)
  Sender: FDA-Public Use
  Company Number: PHRM2007FR02692

PATIENT
  Age: 86 Year
  Sex: Female

DRUGS (5)
  1. TAREG [Suspect]
     Indication: HYPERTENSION
     Dosage: 80 MG, QD
     Route: 048
     Dates: start: 20020901, end: 20070824
  2. PARACETAMOL [Concomitant]
  3. TIMOPTIC [Concomitant]
     Dosage: UNK, UNK
  4. XALATAN [Concomitant]
  5. EURONAC [Concomitant]

REACTIONS (6)
  - ASTHENIA [None]
  - BACK PAIN [None]
  - FALL [None]
  - HYPONATRAEMIA [None]
  - MALAISE [None]
  - MUSCLE HAEMORRHAGE [None]
